FAERS Safety Report 6222608-3 (Version None)
Quarter: 2009Q2

REPORT INFORMATION
  Report Type: 
  Country: None (occurrence: None)
  Receive Date: 20090611
  Receipt Date: 20090605
  Transmission Date: 20091009
  Serious: No
  Sender: FDA-Public Use
  Company Number: US-B.I. PHARMACEUTICALS,INC./RIDGEFIELD-2009-BP-06985BP

PATIENT
  Sex: Female

DRUGS (8)
  1. SPIRIVA [Suspect]
     Indication: EMPHYSEMA
     Dosage: 18MCG
     Route: 055
     Dates: start: 20070101
  2. BETOPTICS S [Concomitant]
     Indication: GLAUCOMA
     Dates: start: 20050101
  3. AZOPT [Concomitant]
     Indication: GLAUCOMA
     Dates: start: 20050101
  4. LUNAGEN [Concomitant]
     Indication: GLAUCOMA
     Dates: start: 20050101
  5. GLIMEPIRIDE [Concomitant]
     Indication: DIABETES MELLITUS
     Dates: start: 19970101
  6. TOPROL-XL [Concomitant]
     Indication: HEART RATE INCREASED
     Dates: start: 19990101
  7. TOPROL-XL [Concomitant]
     Indication: HYPERTENSION
  8. ASPIRIN [Concomitant]
     Indication: HEART RATE INCREASED
     Dates: start: 19970101

REACTIONS (2)
  - FALL [None]
  - HAND FRACTURE [None]
